FAERS Safety Report 4628196-7 (Version None)
Quarter: 2005Q2

REPORT INFORMATION
  Report Type: 
  Country: None (occurrence: None)
  Receive Date: 20050401
  Receipt Date: 20050321
  Transmission Date: 20051028
  Serious: Yes (Other)
  Sender: FDA-Public Use
  Company Number: 2005047192

PATIENT
  Age: 73 Year
  Sex: Male

DRUGS (18)
  1. IRINOTECAN HCL [Suspect]
     Indication: NON-SMALL CELL LUNG CANCER
     Dosage: 141 MG, INTRAVENOUS
     Route: 042
     Dates: start: 20041105, end: 20041126
  2. BAKUMONDOUTO (HERBAL EXTRACTS NOS) [Concomitant]
  3. CARBOCISTEINE (CARBOCISTEINE) [Concomitant]
  4. REBAMIPIDE (REBAMIPIDE) [Concomitant]
  5. THEOPHYLLINE [Concomitant]
  6. SENNA (SENNA) [Concomitant]
  7. DICLOFENAC SODIUM [Concomitant]
  8. LEVOFLOXACIN [Concomitant]
  9. LOPERAMIDE HYDROCHLORIDE [Concomitant]
  10. MAGNESIUM OXIDE (MAGNESIUM OXIDE) [Concomitant]
  11. BUPRENORPHINE HYDROCHLORIDE [Concomitant]
  12. FAMOTIDINE [Concomitant]
  13. LACTOBACILLUS BIFIDUS, LYOPHILIZED (LACTOBACILLUS BIFIDUS, LYOPHILIZED [Concomitant]
  14. GRANISETRON (GRANISETRON) [Concomitant]
  15. DEXAMETHASONE [Concomitant]
  16. PENTAZOCINE (PENATZOCINE) [Concomitant]
  17. HYDROXYZINE HCL [Concomitant]
  18. HALOPERIDOL [Concomitant]

REACTIONS (5)
  - BRONCHIAL OBSTRUCTION [None]
  - CHEST X-RAY ABNORMAL [None]
  - DISEASE PROGRESSION [None]
  - DRUG TOXICITY [None]
  - HYPOXIA [None]
